FAERS Safety Report 13388163 (Version 1)
Quarter: 2017Q1

REPORT INFORMATION
  Report Type: Spontaneous
  Country: US (occurrence: US)
  Receive Date: 20170330
  Receipt Date: 20170330
  Transmission Date: 20170429
  Serious: No
  Sender: FDA-Public Use
  Company Number: US-LPDUSPRD-20160889

PATIENT
  Age: 64 Year
  Sex: Male

DRUGS (2)
  1. DOPAMINE HCL [Suspect]
     Active Substance: DOPAMINE HYDROCHLORIDE
     Dosage: DOSE UNKNOWN
     Route: 042
  2. WATER PILL [Concomitant]
     Active Substance: UNSPECIFIED INGREDIENT
     Dosage: DOSE UNKNOWN
     Route: 065

REACTIONS (2)
  - Device dislocation [Unknown]
  - Hypotension [Unknown]
